FAERS Safety Report 8439129-X (Version None)
Quarter: 2012Q2

REPORT INFORMATION
  Report Type: 
  Country: None (occurrence: None)
  Receive Date: 20120615
  Receipt Date: 20120606
  Transmission Date: 20120825
  Serious: Yes (Hospitalization)
  Sender: FDA-Public Use
  Company Number: CH-BRISTOL-MYERS SQUIBB COMPANY-16670689

PATIENT
  Age: 34 Year
  Sex: Female

DRUGS (5)
  1. METHADONE HCL [Concomitant]
     Indication: POLYSUBSTANCE DEPENDENCE
     Route: 048
  2. TRUVADA [Concomitant]
     Indication: HIV INFECTION
     Route: 048
     Dates: start: 20120216
  3. REYATAZ [Suspect]
     Indication: HIV INFECTION
     Route: 048
     Dates: start: 20120216
  4. MIDAZOLAM HCL [Interacting]
     Indication: POLYSUBSTANCE DEPENDENCE
     Route: 048
  5. NORVIR [Interacting]
     Indication: HIV INFECTION
     Route: 048
     Dates: start: 20120216

REACTIONS (4)
  - DISTURBANCE IN ATTENTION [None]
  - SOMNOLENCE [None]
  - CONFUSIONAL STATE [None]
  - DRUG INTERACTION [None]
